FAERS Safety Report 5262816-1 (Version None)
Quarter: 2007Q1

REPORT INFORMATION
  Report Type: 
  Country: None (occurrence: None)
  Receive Date: 20070312
  Receipt Date: 20070301
  Transmission Date: 20070707
  Serious: Yes (Hospitalization)
  Sender: FDA-Public Use
  Company Number: JP-JNJFOC-20060702902

PATIENT
  Sex: Male
  Weight: 40 kg

DRUGS (5)
  1. REMICADE [Suspect]
     Route: 042
  2. REMICADE [Suspect]
     Indication: CROHN'S DISEASE
     Route: 042
  3. IMURAN [Concomitant]
     Route: 048
  4. PENTASA [Concomitant]
     Dosage: 3 GM/1 GM
     Route: 048
  5. RACOL [Concomitant]
     Dosage: 3 GM/1 GM
     Route: 048

REACTIONS (2)
  - ANAPHYLACTOID REACTION [None]
  - NASOPHARYNGITIS [None]
